FAERS Safety Report 12365613 (Version 1)
Quarter: 2016Q2

REPORT INFORMATION
  Report Type: Spontaneous
  Country: JP (occurrence: JP)
  Receive Date: 20160513
  Receipt Date: 20160513
  Transmission Date: 20160815
  Serious: Yes (Hospitalization, Other)
  Sender: FDA-Public Use
  Company Number: JP-MYLANLABS-2016M1018507

PATIENT

DRUGS (7)
  1. FLUOROURACIL. [Suspect]
     Active Substance: FLUOROURACIL
     Indication: RECTAL CANCER
     Dosage: BOLUS 400 MG/M2 ON D1; 2400 MG/M2 OVER 48H CONTINUOUS DOSE OF 1ST COURSE, FOLLOWED BY
     Route: 065
     Dates: start: 20130724
  2. IRINOTECAN [Suspect]
     Active Substance: IRINOTECAN
     Indication: RECTAL CANCER
     Dosage: 150 MG/M2 ON DAY 1 OF FIRST COURSE, FOLLOWED BY
     Route: 065
     Dates: start: 20130724
  3. CETUXIMAB [Suspect]
     Active Substance: CETUXIMAB
     Indication: RECTAL CANCER
     Dosage: 250 MG/M2 DAYS 1, 8
     Route: 065
  4. FLUOROURACIL. [Suspect]
     Active Substance: FLUOROURACIL
     Dosage: FOLLOWED BY 1920 MG/M2 48H CONTINUOUS DOSE
     Route: 065
     Dates: start: 20130724
  5. IRINOTECAN [Suspect]
     Active Substance: IRINOTECAN
     Dosage: FOLLOWED BY 120 MG/M2 DAY 1
     Route: 065
     Dates: start: 20130724
  6. FOLINIC ACID [Suspect]
     Active Substance: LEUCOVORIN
     Dosage: FOLLOWED BY 160 MG/M2 DAY 1
     Route: 065
     Dates: start: 20130724
  7. FOLINIC ACID [Suspect]
     Active Substance: LEUCOVORIN
     Indication: RECTAL CANCER
     Dosage: 200 MG/M2 ON DAY 1 OF FIRST COURSE, FOLLOWED BY
     Route: 065
     Dates: start: 20130724

REACTIONS (2)
  - Interstitial lung disease [Recovering/Resolving]
  - Neutropenia [Unknown]
